FAERS Safety Report 12553405 (Version 3)
Quarter: 2016Q3

REPORT INFORMATION
  Report Type: Spontaneous
  Country: JP (occurrence: JP)
  Receive Date: 20160713
  Receipt Date: 20160825
  Transmission Date: 20161109
  Serious: Yes (Death, Hospitalization)
  Sender: FDA-Public Use
  Company Number: JP-JNJFOC-20160708892

PATIENT
  Age: 49 Year
  Sex: Female
  Weight: 53 kg

DRUGS (30)
  1. AMOBAN [Concomitant]
     Active Substance: ZOPICLONE
     Route: 065
     Dates: end: 201508
  2. MUCOSOLVAN [Concomitant]
     Active Substance: AMBROXOL HYDROCHLORIDE
     Route: 065
     Dates: start: 201504
  3. SILECE [Concomitant]
     Active Substance: FLUNITRAZEPAM
     Route: 065
  4. ABILIFY [Suspect]
     Active Substance: ARIPIPRAZOLE
     Indication: SCHIZOPHRENIA
     Dosage: STRENGTH: 6 MG
     Route: 048
     Dates: start: 201504, end: 20150613
  5. THYRADIN [Concomitant]
     Active Substance: LEVOTHYROXINE
     Indication: HYPOTHYROIDISM
     Route: 065
     Dates: start: 201504
  6. LAMICTAL [Concomitant]
     Active Substance: LAMOTRIGINE
     Route: 065
     Dates: start: 201504
  7. RISPERIDONE. [Suspect]
     Active Substance: RISPERIDONE
     Indication: RESTLESSNESS
     Route: 048
     Dates: start: 201507
  8. ABILIFY [Suspect]
     Active Substance: ARIPIPRAZOLE
     Indication: SCHIZOPHRENIA
     Route: 030
     Dates: start: 20150622, end: 20150818
  9. MAGLAX [Concomitant]
     Active Substance: MAGNESIUM OXIDE
     Route: 065
  10. DAIOKANZOTO [Concomitant]
     Active Substance: LICORICE ROOT EXTRACT\RHUBARB
     Route: 065
     Dates: start: 201504
  11. LANDSEN [Concomitant]
     Active Substance: CLONAZEPAM
     Route: 065
     Dates: end: 201508
  12. TEGRETOL [Concomitant]
     Active Substance: CARBAMAZEPINE
     Route: 065
     Dates: start: 201504
  13. GASCON [Concomitant]
     Active Substance: DIMETHICONE
     Route: 065
     Dates: start: 201504
  14. LEXOTAN [Concomitant]
     Active Substance: BROMAZEPAM
     Route: 065
     Dates: start: 201504
  15. AKINETON [Concomitant]
     Active Substance: BIPERIDEN HYDROCHLORIDE
     Indication: AKATHISIA
     Route: 065
  16. DEPAKINE [Concomitant]
     Active Substance: VALPROATE SODIUM
     Route: 065
     Dates: end: 201508
  17. SODIUM VALPROATE [Concomitant]
     Active Substance: VALPROATE SODIUM
     Route: 065
     Dates: start: 201504, end: 20150616
  18. RAMELTEON [Concomitant]
     Active Substance: RAMELTEON
     Route: 065
     Dates: start: 201504
  19. ABILIFY [Suspect]
     Active Substance: ARIPIPRAZOLE
     Indication: SCHIZOPHRENIA
     Dosage: STRENGTH: 12 MG
     Route: 048
     Dates: start: 2015, end: 2015
  20. LONASEN [Suspect]
     Active Substance: BLONANSERIN
     Indication: PRODUCT USED FOR UNKNOWN INDICATION
     Route: 048
     Dates: start: 20150623, end: 20150707
  21. HALCION [Concomitant]
     Active Substance: TRIAZOLAM
     Route: 065
     Dates: start: 201504
  22. DORAL [Concomitant]
     Active Substance: QUAZEPAM
     Route: 065
     Dates: start: 201504
  23. ROZEREM [Concomitant]
     Active Substance: RAMELTEON
     Route: 065
  24. SENNOSIDE A+B CALCIUM [Concomitant]
     Active Substance: SENNOSIDES A AND B
     Route: 065
     Dates: start: 201504
  25. LEVETIRACETAM. [Concomitant]
     Active Substance: LEVETIRACETAM
     Indication: FEELING JITTERY
     Route: 065
     Dates: start: 201504
  26. ABILIFY [Suspect]
     Active Substance: ARIPIPRAZOLE
     Indication: SCHIZOPHRENIA
     Dosage: STRENGTH: 12 MG AND 3 MG
     Route: 048
     Dates: start: 20150623, end: 20150714
  27. MAGMITT [Concomitant]
     Active Substance: MAGNESIUM OXIDE
     Route: 065
     Dates: start: 201508
  28. HALOPERIDOL. [Concomitant]
     Active Substance: HALOPERIDOL
     Route: 065
  29. LONASEN [Suspect]
     Active Substance: BLONANSERIN
     Indication: PRODUCT USED FOR UNKNOWN INDICATION
     Route: 048
     Dates: start: 2015, end: 20150622
  30. HIBERNA [Concomitant]
     Active Substance: PROMETHAZINE HYDROCHLORIDE
     Route: 065
     Dates: start: 201504

REACTIONS (3)
  - Ileus paralytic [Fatal]
  - Inappropriate schedule of drug administration [Unknown]
  - Off label use [Unknown]

NARRATIVE: CASE EVENT DATE: 201507
